FAERS Safety Report 4576239-1 (Version None)
Quarter: 2005Q1

REPORT INFORMATION
  Report Type: 
  Country: None (occurrence: None)
  Receive Date: 20050119
  Receipt Date: 20041108
  Transmission Date: 20050727
  Serious: Yes (Other)
  Sender: FDA-Public Use
  Company Number: A03200403731

PATIENT
  Age: 64 Year
  Sex: Male

DRUGS (1)
  1. PLAVIX [Suspect]
     Indication: ATHEROSCLEROSIS
     Dosage: STARTING DOSE OF 0.75 UG, DOSE WAS DOUBLED EVERY 4 HOURS, 3X/DAY OVER 9 DAYS TO 75MG/DAY TARGET DOSE
     Route: 048

REACTIONS (2)
  - ANGIONEUROTIC OEDEMA [None]
  - URTICARIA [None]
